FAERS Safety Report 20430512 (Version 1)
Quarter: 2022Q1

REPORT INFORMATION
  Report Type: Report from Study
  Country: FR (occurrence: FR)
  Receive Date: 20220204
  Receipt Date: 20220204
  Transmission Date: 20220423
  Serious: Yes (Hospitalization)
  Sender: FDA-Public Use
  Company Number: FR-SERVIER-S20009858

PATIENT

DRUGS (7)
  1. ONCASPAR [Suspect]
     Active Substance: PEGASPARGASE
     Indication: Acute lymphocytic leukaemia
     Dosage: 3800 IU, QD, ON DAYS 12 AND 26
     Route: 042
     Dates: start: 20200720, end: 20200803
  2. TN UNSPECIFIED [Concomitant]
     Indication: Acute lymphocytic leukaemia
     Dosage: 90 MG, ON DAYS 8-28
     Route: 048
     Dates: start: 20200715, end: 20200804
  3. TN UNSPECIFIED [Concomitant]
     Indication: Acute lymphocytic leukaemia
     Dosage: 2 MG, ON DAYS 8, 15, 22 AND 29
     Route: 042
     Dates: start: 20200715, end: 20200805
  4. TN UNSPECIFIED [Concomitant]
     Indication: Acute lymphocytic leukaemia
     Dosage: 47.5 MG, ON DAYS 8, 15, 22 AND 29
     Route: 042
     Dates: start: 20200715, end: 20200805
  5. TN UNSPECIFIED [Concomitant]
     Indication: Acute lymphocytic leukaemia
     Dosage: 15 MG, ON DAYS 13 AND 24
     Route: 037
     Dates: start: 20200721, end: 20200731
  6. TN UNSPECIFIED [Concomitant]
     Indication: Acute lymphocytic leukaemia
     Dosage: 30 MG, ON DAYS 13 AND 24
     Route: 037
     Dates: start: 20200721, end: 20200731
  7. TN UNSPECIFIED [Concomitant]
     Indication: Acute lymphocytic leukaemia
     Dosage: 15 MG, ON DAYS 13 AND 24
     Route: 037
     Dates: start: 20200721, end: 20200731

REACTIONS (2)
  - Hepatic cytolysis [Not Recovered/Not Resolved]
  - Cholestasis [Not Recovered/Not Resolved]

NARRATIVE: CASE EVENT DATE: 20200810
